FAERS Safety Report 8882705 (Version 1)
Quarter: 2012Q4

REPORT INFORMATION
  Report Type: 
  Country: CA (occurrence: CA)
  Receive Date: 20121104
  Receipt Date: 20121104
  Transmission Date: 20130627
  Serious: Yes (Death, Hospitalization)
  Sender: FDA-Public Use
  Company Number: PHHO2005CA08897

PATIENT
  Age: 71 Year
  Sex: Female

DRUGS (5)
  1. SANDOSTATIN (OCTREOTIDE ACETATE) [Suspect]
     Indication: MALIGNANT PERITONEAL NEOPLASM
     Dosage: 10 mg, TID
     Route: 058
  2. SANDOSTATIN LAR (PATIENT BASIS) [Suspect]
     Indication: MALIGNANT PERITONEAL NEOPLASM
     Dosage: 10 mg every 4 weeks
     Dates: start: 20050609
  3. SYNTHROID [Concomitant]
  4. VERAPAMIL [Concomitant]
  5. DECADRON [Concomitant]

REACTIONS (6)
  - Small intestinal obstruction [Fatal]
  - Malaise [Fatal]
  - Colonic obstruction [Fatal]
  - Drug ineffective [Unknown]
  - Petechiae [Unknown]
  - Fatigue [Unknown]
